FAERS Safety Report 24182031 (Version 1)
Quarter: 2024Q3

REPORT INFORMATION
  Report Type: Spontaneous
  Country: PL (occurrence: PL)
  Receive Date: 20240807
  Receipt Date: 20240807
  Transmission Date: 20241016
  Serious: Yes (Death, Other)
  Sender: SANDOZ
  Company Number: PL-002147023-NVSC2022PL050329

PATIENT

DRUGS (2)
  1. FULVESTRANT [Suspect]
     Active Substance: FULVESTRANT
     Indication: Product used for unknown indication
     Dosage: UNK
     Route: 065
  2. RIBOCICLIB [Suspect]
     Active Substance: RIBOCICLIB
     Indication: Product used for unknown indication
     Dosage: UNK
     Route: 065

REACTIONS (7)
  - Disease progression [Fatal]
  - Hepatotoxicity [Unknown]
  - Cardiac failure [Unknown]
  - Leukopenia [Unknown]
  - Tachycardia [Unknown]
  - Bone disorder [Unknown]
  - Diarrhoea [Unknown]
